FAERS Safety Report 25575292 (Version 1)
Quarter: 2025Q3

REPORT INFORMATION
  Report Type: Report from Study
  Country: US (occurrence: US)
  Receive Date: 20250718
  Receipt Date: 20250718
  Transmission Date: 20251021
  Serious: Yes (Other)
  Sender: BIOVITRUM
  Company Number: US-BIOVITRUM-2025-US-009881

PATIENT
  Age: 55 Year
  Sex: Female

DRUGS (1)
  1. DOPTELET [Suspect]
     Active Substance: AVATROMBOPAG MALEATE
     Indication: Immune thrombocytopenia
     Route: 048
     Dates: start: 201910

REACTIONS (8)
  - Pneumonia [Recovered/Resolved]
  - Weight increased [Unknown]
  - Oedema peripheral [Unknown]
  - Dyspnoea [Unknown]
  - Vein rupture [Unknown]
  - Contusion [Unknown]
  - Arthralgia [Recovered/Resolved]
  - Visual impairment [Unknown]
